FAERS Safety Report 5063644-2 (Version None)
Quarter: 2006Q3

REPORT INFORMATION
  Report Type: 
  Country: None (occurrence: None)
  Receive Date: 20060724
  Receipt Date: 20060712
  Transmission Date: 20061208
  Serious: Yes (Hospitalization)
  Sender: FDA-Public Use
  Company Number: 2005-01384

PATIENT
  Age: 64 Year
  Sex: Female
  Weight: 75 kg

DRUGS (3)
  1. VELCADE [Suspect]
     Indication: MULTIPLE MYELOMA
     Dosage: 2.30 MG, INTRAVENOUS
     Route: 042
     Dates: start: 20050201, end: 20050415
  2. ERYTHROPOIETIN                       (ERYTHROPOIETIN) [Concomitant]
  3. EUTIROX               (LEVOTHYROXINE) [Concomitant]

REACTIONS (2)
  - PNEUMONITIS [None]
  - PULMONARY FIBROSIS [None]
